FAERS Safety Report 15093027 (Version 1)
Quarter: 2018Q2

REPORT INFORMATION
  Report Type: Spontaneous
  Country: US (occurrence: US)
  Receive Date: 20180629
  Receipt Date: 20180629
  Transmission Date: 20180711
  Serious: Yes (Hospitalization)
  Sender: FDA-Public Use
  Company Number: US-MATRIXX INITIATIVES, INC.-2051120

PATIENT
  Age: 69 Year
  Sex: Female
  Weight: 70.91 kg

DRUGS (3)
  1. HYDROCHLOROTHIAZIDE. [Concomitant]
     Active Substance: HYDROCHLOROTHIAZIDE
  2. ZICAM COLD REMEDY RAPIDMELTS [Suspect]
     Active Substance: HOMEOPATHICS\ZINC ACETATE ANHYDROUS\ZINC GLUCONATE
     Indication: NASOPHARYNGITIS
     Route: 048
     Dates: start: 20180607, end: 20180608
  3. COLLAGEN PEPTIDES [Concomitant]

REACTIONS (4)
  - Cholecystitis [Recovered/Resolved]
  - Abdominal pain [Recovered/Resolved]
  - Cholelithiasis [Recovered/Resolved]
  - Oral pain [Recovered/Resolved]
